FAERS Safety Report 18291295 (Version 2)
Quarter: 2020Q4

REPORT INFORMATION
  Report Type: Report from Study
  Country: US (occurrence: US)
  Receive Date: 20200921
  Receipt Date: 20201007
  Transmission Date: 20210113
  Serious: Yes (Hospitalization, Other)
  Sender: FDA-Public Use
  Company Number: US-JNJFOC-A-NJ2019-196658

PATIENT
  Age: 67 Year
  Sex: Female
  Weight: 56.75 kg

DRUGS (5)
  1. WARFARIN [Concomitant]
     Active Substance: WARFARIN
  2. TADALAFIL. [Concomitant]
     Active Substance: TADALAFIL
  3. REMODULIN [Concomitant]
     Active Substance: TREPROSTINIL
  4. OPSUMIT [Suspect]
     Active Substance: MACITENTAN
     Indication: PULMONARY ARTERIAL HYPERTENSION
     Dosage: 10 MG, QD
     Route: 048
     Dates: start: 20170523
  5. DILTIAZEM. [Concomitant]
     Active Substance: DILTIAZEM

REACTIONS (15)
  - Dermatitis contact [Unknown]
  - Diarrhoea [Recovered/Resolved]
  - Peripheral swelling [Unknown]
  - Bronchitis [Recovering/Resolving]
  - Infusion site irritation [Unknown]
  - Malaise [Unknown]
  - Ascites [Unknown]
  - Liver disorder [Unknown]
  - Vomiting [Unknown]
  - Fluid retention [Unknown]
  - Infusion site pruritus [Unknown]
  - Diverticulitis [Unknown]
  - Hyponatraemia [Unknown]
  - Dyspnoea [Unknown]
  - Weight decreased [Unknown]

NARRATIVE: CASE EVENT DATE: 201912
